FAERS Safety Report 14878774 (Version 2)
Quarter: 2018Q3

REPORT INFORMATION
  Report Type: Spontaneous
  Country: GB (occurrence: GB)
  Receive Date: 20180511
  Receipt Date: 20180709
  Transmission Date: 20181010
  Serious: Yes (Other)
  Sender: FDA-Public Use
  Company Number: GB-JNJFOC-20180435254

PATIENT
  Age: 1 Year
  Sex: Female

DRUGS (1)
  1. CALPOL [Suspect]
     Active Substance: ACETAMINOPHEN
     Indication: PRODUCT USED FOR UNKNOWN INDICATION
     Route: 048
     Dates: start: 20180425, end: 20180425

REACTIONS (5)
  - Suspected product contamination [Unknown]
  - Choking [Recovered/Resolved]
  - Haematemesis [Recovered/Resolved]
  - Wrong technique in product usage process [Unknown]
  - Dyspnoea [Recovered/Resolved]

NARRATIVE: CASE EVENT DATE: 20180425
